FAERS Safety Report 4381739-3 (Version None)
Quarter: 2004Q2

REPORT INFORMATION
  Report Type: 
  Country: None (occurrence: None)
  Receive Date: 20040615
  Receipt Date: 20040604
  Transmission Date: 20050107
  Serious: Yes (Life-Threatening)
  Sender: FDA-Public Use
  Company Number: FR-JNJFOC-20040601437

PATIENT
  Age: 44 Year
  Sex: Female

DRUGS (2)
  1. REMICADE [Suspect]
     Indication: SPONDYLITIS
     Dosage: 400 MG, INTRAVENOUS
     Route: 042
     Dates: start: 20040311, end: 20040505
  2. LAROXYL ROCHE (AMITRIPTYLINE HYDROCHLORIDE) [Concomitant]

REACTIONS (6)
  - ANAPHYLACTOID REACTION [None]
  - ANGIONEUROTIC OEDEMA [None]
  - CHEST PAIN [None]
  - DYSPNOEA [None]
  - HYPOTENSION [None]
  - LOCALISED OEDEMA [None]
